FAERS Safety Report 7456099-1 (Version None)
Quarter: 2011Q1

REPORT INFORMATION
  Report Type: 
  Country: None (occurrence: None)
  Receive Date: 20110302
  Receipt Date: 20110104
  Transmission Date: 20110831
  Serious: No
  Sender: FDA-Public Use
  Company Number: 024883

PATIENT
  Sex: Female
  Weight: 61.2 kg

DRUGS (1)
  1. CIMZIA [Suspect]
     Indication: CROHN'S DISEASE
     Dosage: TWO SHOTS EVERY MONTH SUBCUTANEOUS
     Route: 058
     Dates: start: 20101203

REACTIONS (2)
  - TOOTH ABSCESS [None]
  - FATIGUE [None]
